FAERS Safety Report 16165108 (Version 3)
Quarter: 2019Q4

REPORT INFORMATION
  Report Type: Report from Study
  Country: CA (occurrence: CA)
  Receive Date: 20190405
  Receipt Date: 20191127
  Transmission Date: 20200122
  Serious: Yes (Other)
  Sender: FDA-Public Use
  Company Number: PHHY2019CA073625

PATIENT
  Sex: Female

DRUGS (1)
  1. KISQALI [Suspect]
     Active Substance: RIBOCICLIB
     Indication: BREAST CANCER METASTATIC
     Dosage: UNK
     Route: 048
     Dates: start: 20190211

REACTIONS (5)
  - Nerve compression [Unknown]
  - Peripheral coldness [Unknown]
  - Neutrophil count decreased [Unknown]
  - Epilepsy [Unknown]
  - Muscle spasms [Unknown]
